FAERS Safety Report 4400765-9 (Version None)
Quarter: 2004Q3

REPORT INFORMATION
  Report Type: 
  Country: None (occurrence: None)
  Receive Date: 20040907
  Receipt Date: 20030418
  Transmission Date: 20050211
  Serious: No
  Sender: FDA-Public Use
  Company Number: US-BRISTOL-MYERS SQUIBB COMPANY-12246385

PATIENT
  Age: 78 Year
  Sex: Female
  Weight: 60 kg

DRUGS (4)
  1. COUMADIN [Suspect]
     Indication: CARDIAC DISORDER
     Dosage: DOSAGE: 5MG ON EVEN DAYS AND 7.5MG ON ODD DAYS
     Route: 048
     Dates: start: 19970101, end: 20030418
  2. LOTENSIN [Concomitant]
  3. TRIAMTERENE [Concomitant]
  4. PLETAL [Concomitant]

REACTIONS (2)
  - SKIN DISCOLOURATION [None]
  - SKIN ULCER [None]
